FAERS Safety Report 10499092 (Version 1)
Quarter: 2014Q4

REPORT INFORMATION
  Report Type: Spontaneous
  Country: US (occurrence: US)
  Receive Date: 20141006
  Receipt Date: 20141006
  Transmission Date: 20150528
  Serious: No
  Sender: FDA-Public Use
  Company Number: US-AMGEN INC.-USASP2014000944

PATIENT
  Sex: Male

DRUGS (3)
  1. XGEVA [Suspect]
     Active Substance: DENOSUMAB
     Indication: PROSTATE CANCER
     Dosage: 120 MG, Q4WK
     Route: 065
     Dates: start: 201207
  2. ATENOLOL. [Concomitant]
     Active Substance: ATENOLOL
     Indication: BLOOD PRESSURE MANAGEMENT
     Dosage: 25 MG, QD
  3. XTANDI [Concomitant]
     Active Substance: ENZALUTAMIDE

REACTIONS (3)
  - Musculoskeletal disorder [Unknown]
  - Hypothyroidism [Unknown]
  - Pain in extremity [Unknown]

NARRATIVE: CASE EVENT DATE: 2013
